FAERS Safety Report 19463063 (Version 1)
Quarter: 2021Q2

REPORT INFORMATION
  Report Type: Spontaneous
  Country: US (occurrence: US)
  Receive Date: 20210625
  Receipt Date: 20210625
  Transmission Date: 20210717
  Serious: Yes (Other)
  Sender: FDA-Public Use
  Company Number: US-GW PHARMA-202106USGW02989

PATIENT

DRUGS (5)
  1. EPIDIOLEX [Interacting]
     Active Substance: CANNABIDIOL
     Dosage: 500 MILLIGRAM, BID (WEEK?5)
     Route: 048
     Dates: start: 2019, end: 2019
  2. KEPPRA [Concomitant]
     Active Substance: LEVETIRACETAM
     Indication: PRODUCT USED FOR UNKNOWN INDICATION
     Dosage: UNK
     Route: 065
  3. EPIDIOLEX [Interacting]
     Active Substance: CANNABIDIOL
     Dosage: 600 MILLIGRAM, BID (WEEK?6 AND THEREAFTER)
     Route: 048
     Dates: start: 2019
  4. FELBAMATE. [Interacting]
     Active Substance: FELBAMATE
     Indication: PRODUCT USED FOR UNKNOWN INDICATION
     Dosage: UNK
     Route: 065
  5. EPIDIOLEX [Suspect]
     Active Substance: CANNABIDIOL
     Indication: EPILEPSY
     Dosage: UNKNOWN DOSE (WEEK?1 TILL WEEK?4) (FIRST SHIPPED ON 25?JAN?2019)
     Route: 048
     Dates: start: 201901, end: 201902

REACTIONS (3)
  - Product supply issue [Unknown]
  - Seizure [Recovering/Resolving]
  - Drug interaction [Unknown]
